FAERS Safety Report 5272573-0 (Version None)
Quarter: 2007Q1

REPORT INFORMATION
  Report Type: 
  Country: None (occurrence: None)
  Receive Date: 20070322
  Receipt Date: 20070313
  Transmission Date: 20070707
  Serious: Yes (Hospitalization)
  Sender: FDA-Public Use
  Company Number: US-ABBOTT-07P-163-0361942-00

PATIENT
  Sex: Male
  Weight: 35 kg

DRUGS (1)
  1. HUMIRA [Suspect]
     Indication: COLITIS ULCERATIVE
     Route: 058
     Dates: start: 20070207, end: 20070214

REACTIONS (3)
  - PAIN [None]
  - PYREXIA [None]
  - SPINAL OSTEOARTHRITIS [None]
